FAERS Safety Report 7157500-3 (Version None)
Quarter: 2010Q4

REPORT INFORMATION
  Report Type: 
  Country: None (occurrence: None)
  Receive Date: 20101130
  Receipt Date: 20101122
  Transmission Date: 20110411
  Serious: Yes (Hospitalization)
  Sender: FDA-Public Use
  Company Number: CIP10002828

PATIENT
  Age: 70 Year
  Sex: Female

DRUGS (8)
  1. ACTONEL [Suspect]
     Indication: OSTEOPOROSIS
     Dosage: 17.5 MG ONCE WEEKLY, ORAL
     Route: 048
     Dates: start: 20101012, end: 20101101
  2. ALEVIATIN /00017401/ (PHENYTOIN) [Concomitant]
  3. PHENOBARBITAL TAB [Concomitant]
  4. ANNACA /00190001/ (CAFFEINE AND SODIUM BENZOATE) [Concomitant]
  5. PANTOSIN (PANTETHINE) [Concomitant]
  6. ESTAZOLAM [Concomitant]
  7. DOGMATYL (SULPIRIDE) [Concomitant]
  8. LIPITOR [Concomitant]

REACTIONS (2)
  - HAEMATEMESIS [None]
  - HEPATITIS ACUTE [None]
